FAERS Safety Report 6719470-9 (Version None)
Quarter: 2010Q2

REPORT INFORMATION
  Report Type: 
  Country: None (occurrence: None)
  Receive Date: 20100511
  Receipt Date: 20100429
  Transmission Date: 20101027
  Serious: Yes (Hospitalization)
  Sender: FDA-Public Use
  Company Number: US-ROCHE-681345

PATIENT
  Sex: Female
  Weight: 73.2 kg

DRUGS (15)
  1. TRASTUZUMAB [Suspect]
     Dosage: DOSE FORM: VIAL
     Route: 042
     Dates: start: 20091111
  2. TRASTUZUMAB [Suspect]
     Dosage: LAST DOSE PRIOR TO SAE: 12 JAN 2010
     Route: 042
  3. TRASTUZUMAB [Suspect]
     Dosage: LAST DOSE PRIOR TO EVENT: 01 MARCH 2010.
     Route: 042
  4. PLACEBO [Suspect]
     Dosage: DOSE FORM: VIAL, LAST DOSE PRIOR TO SAE: 01 MARCH 2010
     Route: 042
     Dates: start: 20091111
  5. DOCETAXEL [Suspect]
     Indication: DRUG USE FOR UNKNOWN INDICATION
     Dosage: DOSE FORM: VIAL, LAST DOSE PRIOR TO SAE: 12 JAN 2010
     Route: 042
     Dates: start: 20091111
  6. DOCETAXEL [Suspect]
     Dosage: LAST DOSE PRIOR TO EVENT: 01 MARCH 2010.
     Route: 042
  7. CELEBREX [Concomitant]
     Dates: start: 20091004
  8. NEURONTIN [Concomitant]
     Dates: start: 20091001
  9. NEXIUM [Concomitant]
     Dates: start: 20071201
  10. OXYCODONE [Concomitant]
     Dates: start: 20091204
  11. TYLENOL COLD [Concomitant]
     Dates: start: 20091021
  12. OXYCONTIN [Concomitant]
     Dates: start: 20091204
  13. OS-CAL [Concomitant]
  14. DILAUDID [Concomitant]
  15. BENADRYL [Concomitant]

REACTIONS (2)
  - DEEP VEIN THROMBOSIS [None]
  - FEMUR FRACTURE [None]
